FAERS Safety Report 10195283 (Version 3)
Quarter: 2014Q2

REPORT INFORMATION
  Report Type: Spontaneous
  Country: DE (occurrence: DE)
  Receive Date: 20140526
  Receipt Date: 20140617
  Transmission Date: 20141212
  Serious: Yes (Other)
  Sender: FDA-Public Use
  Company Number: DE-JNJFOC-20140515041

PATIENT
  Age: 56 Year
  Sex: Female
  Weight: 72 kg

DRUGS (3)
  1. XARELTO [Suspect]
     Indication: ARRHYTHMIA
     Route: 048
     Dates: start: 201309, end: 201404
  2. BERODUAL [Concomitant]
     Route: 065
  3. VERAPAMIL [Concomitant]
     Route: 065

REACTIONS (4)
  - Pyrexia [Recovered/Resolved]
  - Haemoptysis [Recovered/Resolved]
  - Increased tendency to bruise [Recovered/Resolved]
  - Epistaxis [Recovered/Resolved]
